FAERS Safety Report 6811506-X (Version None)
Quarter: 2010Q2

REPORT INFORMATION
  Report Type: 
  Country: None (occurrence: None)
  Receive Date: 20100625
  Receipt Date: 20100612
  Transmission Date: 20101027
  Serious: Yes (Other)
  Sender: FDA-Public Use
  Company Number: 2010AP001225

PATIENT
  Age: 74 Year
  Sex: Male

DRUGS (11)
  1. DICLOFENAC SODIUM [Suspect]
     Indication: GOUTY ARTHRITIS
     Dosage: 100 MG
  2. COLCHICINE (COLCHICINE) [Suspect]
     Indication: GOUTY ARTHRITIS
     Dosage: 1 MG, PO
     Route: 048
  3. PREDNISOLONE [Suspect]
     Indication: GOUTY ARTHRITIS
     Dosage: 40 MG; PO; QD
     Route: 048
  4. AMIODARONE HCL [Suspect]
     Dosage: 200 MG QD
  5. CARVEDILOL [Concomitant]
  6. SIMVASTATIN [Concomitant]
  7. RAMIPRIL [Concomitant]
  8. METFORMIN HCL [Concomitant]
  9. OMEPRAZOLE [Concomitant]
  10. FUROSEMIDE [Concomitant]
  11. WARFARIN [Concomitant]

REACTIONS (8)
  - CHEST PAIN [None]
  - CONDITION AGGRAVATED [None]
  - DRUG INTERACTION [None]
  - GASTROINTESTINAL TOXICITY [None]
  - LARGE INTESTINE PERFORATION [None]
  - LEUKOCYTOSIS [None]
  - PERITONEAL DISORDER [None]
  - RENAL FAILURE ACUTE [None]
